FAERS Safety Report 10469259 (Version 1)
Quarter: 2014Q3

REPORT INFORMATION
  Report Type: Spontaneous
  Country: CA (occurrence: None)
  Receive Date: 20140919
  Receipt Date: 20140919
  Transmission Date: 20150326
  Serious: Yes (Other)
  Sender: FDA-Public Use
  Company Number: COR_00066_2014

PATIENT
  Age: 52 Year
  Sex: Female

DRUGS (2)
  1. LOMUSTINE (LOMUSTINE) [Suspect]
     Active Substance: LOMUSTINE
     Indication: GLIOBLASTOMA
     Dosage: (DF)
     Dates: start: 201307, end: 201407
  2. BEVACIZUMAB (BEVACIZUMAB) [Suspect]
     Active Substance: BEVACIZUMAB
     Indication: GLIOBLASTOMA
     Dosage: (DF [BIWEEKLY]) , (DF)
     Dates: start: 201308, end: 201407

REACTIONS (4)
  - Thrombocytopenia [None]
  - Drug intolerance [None]
  - Malignant neoplasm progression [None]
  - Glioblastoma [None]
